FAERS Safety Report 16780679 (Version 1)
Quarter: 2019Q3

REPORT INFORMATION
  Report Type: Spontaneous
  Country: DE (occurrence: DE)
  Receive Date: 20190906
  Receipt Date: 20190906
  Transmission Date: 20191005
  Serious: Yes (Other)
  Sender: FDA-Public Use
  Company Number: DE-MYLANLABS-2019M1083207

PATIENT
  Age: 30 Year
  Sex: Male

DRUGS (10)
  1. AZATHIOPRINE. [Suspect]
     Active Substance: AZATHIOPRINE
     Indication: CROHN^S DISEASE
     Dosage: 150 MILLIGRAM, QD
     Route: 065
     Dates: start: 201609, end: 2017
  2. ADALIMUMAB [Concomitant]
     Active Substance: ADALIMUMAB
     Dosage: 40 MILLIGRAM, BIWEEKLY
     Route: 065
     Dates: start: 201705
  3. PREDNISOLONE. [Concomitant]
     Active Substance: PREDNISOLONE
     Dosage: UP TO 40 MG
     Route: 065
  4. PREDNISOLONE. [Concomitant]
     Active Substance: PREDNISOLONE
     Dosage: INITIALLY 20 MG
     Route: 065
     Dates: start: 201609
  5. ADALIMUMAB [Concomitant]
     Active Substance: ADALIMUMAB
     Dosage: INDUCTION WITH 160 AND 80 MG IN WEEK 0 AND 2
     Route: 065
     Dates: start: 201701
  6. COTRIM FORTE [Concomitant]
     Active Substance: SULFAMETHOXAZOLE\TRIMETHOPRIM
     Indication: ANTIFUNGAL PROPHYLAXIS
     Dosage: UNK UNK, Q2D (EVERY 2 DAYS)
     Route: 065
     Dates: start: 2017, end: 2017
  7. MESALAZINE [Concomitant]
     Active Substance: MESALAMINE
     Indication: CROHN^S DISEASE
     Dosage: 2X 1200 MG
     Route: 065
     Dates: start: 201507
  8. PREDNISOLONE. [Concomitant]
     Active Substance: PREDNISOLONE
     Dosage: 20 MILLIGRAM
     Route: 065
     Dates: start: 2017, end: 2017
  9. ADALIMUMAB [Concomitant]
     Active Substance: ADALIMUMAB
     Indication: CROHN^S DISEASE
     Dosage: 40 MILLIGRAM, QW
     Route: 065
     Dates: start: 2017
  10. ADALIMUMAB [Concomitant]
     Active Substance: ADALIMUMAB
     Dosage: 40 MILLIGRAM, QW
     Route: 065
     Dates: start: 201712

REACTIONS (2)
  - Drug ineffective [Recovered/Resolved]
  - Crohn^s disease [Recovered/Resolved]

NARRATIVE: CASE EVENT DATE: 201609
